FAERS Safety Report 18022913 (Version 1)
Quarter: 2020Q3

REPORT INFORMATION
  Report Type: Spontaneous
  Country: US (occurrence: US)
  Receive Date: 20200715
  Receipt Date: 20200715
  Transmission Date: 20201103
  Serious: No
  Sender: FDA-Public Use
  Company Number: US-ALLERGAN-2013720US

PATIENT
  Age: 69 Year
  Sex: Female

DRUGS (2)
  1. TIROSINT [Concomitant]
     Active Substance: LEVOTHYROXINE SODIUM
     Indication: THYROID DISORDER
  2. UBRELVY [Suspect]
     Active Substance: UBROGEPANT
     Indication: MIGRAINE WITH AURA
     Dosage: 50 MG
     Route: 048
     Dates: start: 202003

REACTIONS (6)
  - Feeling cold [Recovered/Resolved]
  - Tremor [Recovered/Resolved]
  - Muscle spasms [Recovered/Resolved]
  - Aura [Recovered/Resolved]
  - Neck pain [Recovered/Resolved]
  - Chills [Recovered/Resolved]
